FAERS Safety Report 12425574 (Version 2)
Quarter: 2016Q2

REPORT INFORMATION
  Report Type: Spontaneous
  Country: GB (occurrence: GB)
  Receive Date: 20160601
  Receipt Date: 20160621
  Transmission Date: 20160815
  Serious: Yes (Hospitalization)
  Sender: FDA-Public Use
  Company Number: GB-009507513-1606GBR000148

PATIENT
  Age: 70 Year
  Sex: Male

DRUGS (2)
  1. REVLIMID [Suspect]
     Active Substance: LENALIDOMIDE
     Indication: PLASMA CELL MYELOMA
     Dosage: DAYS 1-21 OF A 28 DAY CYCLE (15 MG,1 IN 1 D)
     Route: 048
     Dates: start: 20150623, end: 20160509
  2. DEXAMETHASONE. [Suspect]
     Active Substance: DEXAMETHASONE
     Indication: PLASMA CELL MYELOMA
     Dosage: (DAYS 1,8, 15 AND 22 OF A 28 DAY CYCLE) (8 MG,1IN1 WK)
     Route: 048
     Dates: start: 20150623, end: 20160505

REACTIONS (3)
  - Atrial fibrillation [Recovering/Resolving]
  - Tooth infection [Recovering/Resolving]
  - Off label use [Unknown]

NARRATIVE: CASE EVENT DATE: 20160510
